FAERS Safety Report 9163113 (Version 1)
Quarter: 2013Q1

REPORT INFORMATION
  Report Type: Spontaneous
  Country: DK (occurrence: None)
  Receive Date: 20130227
  Receipt Date: 20130227
  Transmission Date: 20140127
  Serious: Yes (Other)
  Sender: FDA-Public Use
  Company Number: 2013MA001317

PATIENT
  Age: 77 Year
  Sex: Male

DRUGS (7)
  1. PROMETHAZINE HCL [Suspect]
     Indication: INSOMNIA
     Dates: start: 20121227, end: 20121228
  2. ASPIRIN(CON.) [Concomitant]
  3. FLECAINIDE [Concomitant]
  4. ACETATE(CON.) [Concomitant]
  5. SIMVASTATIN(CON.) [Concomitant]
  6. CANDESARTAN(CON.) [Concomitant]
  7. PREDNISOLONE(CON.) [Concomitant]

REACTIONS (4)
  - Insomnia [None]
  - Paraesthesia [None]
  - Restlessness [None]
  - Balance disorder [None]
